FAERS Safety Report 6708974-0 (Version None)
Quarter: 2010Q2

REPORT INFORMATION
  Report Type: 
  Country: None (occurrence: None)
  Receive Date: 20100504
  Receipt Date: 20100427
  Transmission Date: 20101027
  Serious: Yes (Life-Threatening, Other)
  Sender: FDA-Public Use
  Company Number: PHHY2010BE27238

PATIENT
  Age: 71 Year
  Sex: Female

DRUGS (4)
  1. MIACALCIN [Suspect]
     Dosage: UNK
     Dates: start: 19940101, end: 19940101
  2. MIACALCIN [Suspect]
     Dosage: ONCE BEFORE GOING TO BED
     Route: 045
     Dates: start: 19940101
  3. MIACALCIN [Suspect]
     Dosage: APPLIED 3 TIMES
     Route: 045
     Dates: start: 20100426
  4. CREON [Concomitant]
     Indication: PANCREATIC DISORDER

REACTIONS (12)
  - DECREASED APPETITE [None]
  - DIPLOPIA [None]
  - DIZZINESS [None]
  - EXPIRED DRUG ADMINISTERED [None]
  - FEELING ABNORMAL [None]
  - INCORRECT STORAGE OF DRUG [None]
  - INTENTIONAL OVERDOSE [None]
  - LOCALISED INFECTION [None]
  - MALAISE [None]
  - NAUSEA [None]
  - PHLEBITIS [None]
  - TREMOR [None]
